FAERS Safety Report 16160213 (Version 12)
Quarter: 2019Q4

REPORT INFORMATION
  Report Type: Spontaneous
  Country: US (occurrence: US)
  Receive Date: 20190404
  Receipt Date: 20191028
  Transmission Date: 20200122
  Serious: Yes (Death, Hospitalization, Other)
  Sender: FDA-Public Use
  Company Number: US-ACTELION-A-NJ2019-187636

PATIENT
  Age: 70 Year
  Sex: Male
  Weight: 63.49 kg

DRUGS (10)
  1. LETAIRIS [Concomitant]
     Active Substance: AMBRISENTAN
  2. VELETRI [Suspect]
     Active Substance: EPOPROSTENOL
     Dosage: 32 NG/KG, PER MIN
     Route: 042
  3. VELETRI [Suspect]
     Active Substance: EPOPROSTENOL
     Dosage: 16 NG/KG, PER MIN
     Route: 042
  4. VELETRI [Suspect]
     Active Substance: EPOPROSTENOL
     Dosage: 24 NG/KG, PER MIN
     Route: 042
  5. VELETRI [Suspect]
     Active Substance: EPOPROSTENOL
     Dosage: 50 NG/KG, PER MIN
     Route: 042
  6. VELETRI [Suspect]
     Active Substance: EPOPROSTENOL
     Indication: PULMONARY ARTERIAL HYPERTENSION
     Dosage: 50 NG/KG, PER MIN
     Route: 042
  7. VELETRI [Suspect]
     Active Substance: EPOPROSTENOL
     Dosage: 10 NG/KG, PER MIN
     Route: 042
  8. VELETRI [Suspect]
     Active Substance: EPOPROSTENOL
     Dosage: 22 NG/KG, PER MIN
     Route: 042
  9. VELETRI [Suspect]
     Active Substance: EPOPROSTENOL
     Dosage: 46 NG/KG, PER MIN
     Route: 042
  10. ADCIRCA [Concomitant]
     Active Substance: TADALAFIL

REACTIONS (23)
  - Erythema [Unknown]
  - Feeling hot [Unknown]
  - Death [Fatal]
  - Hospitalisation [Not Recovered/Not Resolved]
  - Gait inability [Unknown]
  - Oedema [Unknown]
  - Hypotension [Unknown]
  - Device programming error [Unknown]
  - Fluid overload [Unknown]
  - Dyspnoea [Unknown]
  - Device alarm issue [Unknown]
  - Complication associated with device [Unknown]
  - Decreased appetite [Unknown]
  - Peripheral swelling [Unknown]
  - Crepitations [Unknown]
  - Device breakage [Unknown]
  - Incorrect dose administered [Unknown]
  - Paracentesis [Unknown]
  - Insomnia [Unknown]
  - Diarrhoea [Unknown]
  - Abdominal discomfort [Unknown]
  - Flushing [Unknown]
  - Tachypnoea [Unknown]

NARRATIVE: CASE EVENT DATE: 20190729
